FAERS Safety Report 5430528-7 (Version None)
Quarter: 2007Q3

REPORT INFORMATION
  Report Type: 
  Country: None (occurrence: None)
  Receive Date: 20070828
  Receipt Date: 20070813
  Transmission Date: 20080115
  Serious: Yes (Other)
  Sender: FDA-Public Use
  Company Number: 2007RR-09322

PATIENT
  Age: 57 Year
  Sex: Male

DRUGS (5)
  1. CLARITHROMYCIN [Suspect]
     Indication: DENTOFACIAL FUNCTIONAL DISORDER
     Dosage: 750 MG, ORAL
     Route: 048
  2. DICLOFENACO RANBAXY 100 MG COMPRIMIDOS DE LIBERACION PROLONGADA(DICLOF [Suspect]
     Dosage: 150 MG,
  3. ACETYLSALICYLIC ACID SRT [Suspect]
     Dosage: 2 G,
  4. ACETAMINOPHEN [Suspect]
     Dosage: 2 G,
  5. DIPYRONE TAB [Suspect]
     Indication: DENTAL CARIES
     Dosage: 6 G,

REACTIONS (1)
  - AGRANULOCYTOSIS [None]
